FAERS Safety Report 17477088 (Version 1)
Quarter: 2020Q1

REPORT INFORMATION
  Report Type: Report from Study
  Country: CA (occurrence: CA)
  Receive Date: 20200228
  Receipt Date: 20200228
  Transmission Date: 20200409
  Serious: Yes (Hospitalization, Other)
  Sender: FDA-Public Use
  Company Number: CA-JNJFOC-20191018506

PATIENT
  Sex: Female
  Weight: 54 kg

DRUGS (2)
  1. STELARA [Suspect]
     Active Substance: USTEKINUMAB
     Indication: CROHN^S DISEASE
     Route: 058
     Dates: start: 20190419
  2. STELARA [Suspect]
     Active Substance: USTEKINUMAB
     Route: 058
     Dates: start: 20190419, end: 20191011

REACTIONS (5)
  - Drug ineffective [Unknown]
  - Haematochezia [Unknown]
  - Product use issue [Unknown]
  - Cognitive disorder [Unknown]
  - Off label use [Unknown]

NARRATIVE: CASE EVENT DATE: 2019
